FAERS Safety Report 10206436 (Version 3)
Quarter: 2015Q1

REPORT INFORMATION
  Report Type: Report from Study
  Country: FR (occurrence: FR)
  Receive Date: 20140530
  Receipt Date: 20150218
  Transmission Date: 20150720
  Serious: Yes (Hospitalization, Other)
  Sender: FDA-Public Use
  Company Number: FR-ROCHE-1407021

PATIENT
  Sex: Female

DRUGS (9)
  1. RITUXIMAB [Suspect]
     Active Substance: RITUXIMAB
     Indication: RHEUMATOID ARTHRITIS
     Dosage: SECOND INFUSION OF RITUXIMAB: 1 G (D15) ON 24/MAY/2007
     Route: 042
     Dates: start: 20070510
  2. RITUXIMAB [Suspect]
     Active Substance: RITUXIMAB
     Dosage: SECOND INFUSION OF RITUXIMAB: 1 G (D15) ON 23/JUN/2009
     Route: 042
     Dates: start: 20090609
  3. TOCILIZUMAB [Suspect]
     Active Substance: TOCILIZUMAB
     Indication: PRODUCT USED FOR UNKNOWN INDICATION
     Route: 065
     Dates: start: 20110203
  4. CORTANCYL [Concomitant]
     Active Substance: PREDNISONE
  5. RITUXIMAB [Suspect]
     Active Substance: RITUXIMAB
     Dosage: SECOND INFUSION OF RITUXIMAB: 1 G (D15) ON 29/SEP/2008
     Route: 042
     Dates: start: 20080915
  6. RITUXIMAB [Suspect]
     Active Substance: RITUXIMAB
     Dosage: SECOND INFUSION OF RITUXIMAB: 1 G (D15) ON 29/JAN/2010
     Route: 042
     Dates: start: 20100115
  7. METHOTREXATE [Concomitant]
     Active Substance: METHOTREXATE
     Route: 065
  8. RITUXIMAB [Suspect]
     Active Substance: RITUXIMAB
     Dosage: SECOND INFUSION OF RITUXIMAB: 1 G (D15) ON 17/DEC/2007
     Route: 042
     Dates: start: 20071203
  9. RITUXIMAB [Suspect]
     Active Substance: RITUXIMAB
     Dosage: SECOND INFUSION OF RITUXIMAB: 1 G (D15) ON 10/AUG/2010
     Route: 042
     Dates: start: 20100727

REACTIONS (12)
  - Embolism [Recovered/Resolved]
  - Arthritis [Recovered/Resolved]
  - Diarrhoea [Not Recovered/Not Resolved]
  - Palpitations [Recovered/Resolved]
  - Arthritis infective [Unknown]
  - Pathological fracture [Not Recovered/Not Resolved]
  - Influenza like illness [Recovered/Resolved]
  - Leukocytosis [Recovered/Resolved]
  - Lung infection [Recovered/Resolved]
  - Hypertension [Not Recovered/Not Resolved]
  - Cough [Recovered/Resolved]
  - Pain in extremity [Recovered/Resolved]

NARRATIVE: CASE EVENT DATE: 200801
